FAERS Safety Report 10109280 (Version 1)
Quarter: 2014Q2

REPORT INFORMATION
  Report Type: Spontaneous
  Country: US (occurrence: None)
  Receive Date: 20140424
  Receipt Date: 20140424
  Transmission Date: 20141212
  Serious: Yes (Death, Life-Threatening, Hospitalization)
  Sender: FDA-Public Use
  Company Number: None

PATIENT
  Age: 81 Year
  Sex: Male
  Weight: 46.5 kg

DRUGS (1)
  1. DIAMOX [Suspect]
     Indication: RESPIRATORY DISORDER
     Dosage: 250 MG, 1 PILL, TWICE DAILY FOR TWO DAYS BY MOUTH
     Route: 048
     Dates: start: 20080409, end: 20080411

REACTIONS (10)
  - Off label use [None]
  - Metabolic acidosis [None]
  - Diarrhoea [None]
  - Hypotension [None]
  - Acute respiratory failure [None]
  - Cardiac failure [None]
  - Renal failure acute [None]
  - Oedema [None]
  - Blister [None]
  - Decubitus ulcer [None]
